FAERS Safety Report 8766110 (Version 3)
Quarter: 2013Q2

REPORT INFORMATION
  Report Type: Report from Study
  Country: JP (occurrence: JP)
  Receive Date: 20120904
  Receipt Date: 20130524
  Transmission Date: 20140414
  Serious: Yes (Hospitalization, Other)
  Sender: FDA-Public Use
  Company Number: JP-009507513-1208JPN012190

PATIENT
  Age: 57 Year
  Sex: Male
  Weight: 62 kg

DRUGS (25)
  1. PEGINTRON [Suspect]
     Indication: CHRONIC HEPATITIS C
     Dosage: 1.6 MICROGRAM PER KILOGRAM, QW
     Route: 058
     Dates: start: 20120309, end: 20120607
  2. PEGINTRON [Suspect]
     Dosage: 1.4 MICROGRAM PER KILOGRAM, QW
     Route: 058
     Dates: start: 20120621, end: 20120705
  3. PEGINTRON [Suspect]
     Dosage: 1.4 MICROGRAM PER KILOGRAM, QW
     Route: 058
     Dates: start: 20120719
  4. REBETOL [Suspect]
     Indication: CHRONIC HEPATITIS C
     Dosage: 800 MG, QD
     Route: 048
     Dates: start: 20120309, end: 20120322
  5. REBETOL [Suspect]
     Dosage: 600 MG, QD
     Route: 048
     Dates: start: 20120323, end: 20120329
  6. REBETOL [Suspect]
     Dosage: 400 MG, QD
     Route: 048
     Dates: start: 20120330, end: 20120412
  7. REBETOL [Suspect]
     Dosage: 200 MG, QD
     Route: 048
     Dates: start: 20120413, end: 20120531
  8. REBETOL [Suspect]
     Dosage: 400 MG, QD
     Route: 048
     Dates: start: 20120601, end: 20120613
  9. REBETOL [Suspect]
     Dosage: 200 MG, QD
     Route: 048
     Dates: start: 20120614, end: 20120801
  10. REBETOL [Suspect]
     Dosage: 400 MG, QD
     Route: 048
     Dates: start: 20120802
  11. TELAVIC [Suspect]
     Indication: CHRONIC HEPATITIS C
     Dosage: 2250 MG, QD
     Route: 048
     Dates: start: 20120309, end: 20120523
  12. TELAVIC [Suspect]
     Dosage: 1500 MG, QD
     Route: 048
     Dates: start: 20120524, end: 20120531
  13. AMLODIPINE TOWA [Concomitant]
     Indication: HYPERTENSION
     Dosage: 5 MG, QD, POR
     Route: 048
     Dates: end: 20120321
  14. AMLODIPINE TOWA [Concomitant]
     Dosage: 5 MG, QD, POR
     Route: 048
     Dates: start: 20120329, end: 20120516
  15. TENORMIN [Concomitant]
     Indication: HYPERTENSION
     Dosage: 50 MG, QD, POR
     Route: 048
     Dates: end: 20120318
  16. ACINON [Concomitant]
     Indication: PROPHYLAXIS
     Dosage: 300 MG, QD
     Route: 048
     Dates: start: 20120309
  17. PROMAC (NITROFURANTOIN) [Concomitant]
     Indication: PROPHYLAXIS
     Dosage: 150 MG, QD, POR
     Route: 048
     Dates: start: 20120309
  18. EPADEL S [Concomitant]
     Indication: PROPHYLAXIS
     Dosage: 1200 MG, QD, POR
     Route: 048
     Dates: start: 20120309, end: 20120412
  19. EPADEL S [Concomitant]
     Dosage: 1800 MG, QD, POR
     Route: 048
     Dates: start: 20120413, end: 20120627
  20. EPADEL S [Concomitant]
     Dosage: 1200 MG, QD, POR
     Route: 048
     Dates: start: 20120628
  21. ELIETEN [Concomitant]
     Indication: PROPHYLAXIS
     Dosage: 15 MG, QD, POR
     Route: 048
     Dates: start: 20120412, end: 20120530
  22. ELIETEN [Concomitant]
     Dosage: 15 MG, QD, POR
     Route: 048
     Dates: start: 20120621, end: 20120627
  23. NU-LOTAN TABLET 50 [Concomitant]
     Indication: HYPERTENSION
     Dosage: 5 MG, QD, POR
     Route: 048
     Dates: start: 20120517
  24. NU-LOTAN TABLET 50 [Concomitant]
     Dosage: 50 MG, QD, POR
     Route: 048
     Dates: end: 20120613
  25. NU-LOTAN TABLET 50 [Concomitant]
     Dosage: 25 MG, QD, POR
     Route: 048
     Dates: start: 20120614

REACTIONS (4)
  - Blood creatinine increased [Recovered/Resolved]
  - Blood uric acid increased [Recovered/Resolved]
  - Haemoglobin decreased [Not Recovered/Not Resolved]
  - Supraventricular tachycardia [Recovering/Resolving]
